FAERS Safety Report 8326872-6 (Version None)
Quarter: 2012Q2

REPORT INFORMATION
  Report Type: 
  Country: None (occurrence: None)
  Receive Date: 20120501
  Receipt Date: 20120416
  Transmission Date: 20120825
  Serious: Yes (Other)
  Sender: FDA-Public Use
  Company Number: US-ARROW GEN-2012-06727

PATIENT
  Age: 54 Year
  Sex: Female

DRUGS (8)
  1. AZITHROMYCIN [Suspect]
     Dosage: 500 MG, DAILY BEGINNIN ON 3RD DAY
  2. CEFTRIAXONE SODIUM [Suspect]
     Indication: PNEUMONIA
     Dosage: 1 G
     Route: 042
  3. TACROLIMUS [Suspect]
     Dosage: 0.5 MG, SINGLE ON DAY 4, DOSAGE DECLINED FOR REMAINDER OF ADMISSION
     Route: 048
  4. AZITHROMYCIN [Suspect]
     Indication: PNEUMONIA
     Dosage: 500 MG, DAILY FOR 2 DAYS
     Route: 042
  5. TACROLIMUS [Suspect]
     Indication: HEART TRANSPLANT
     Dosage: 4 MG, QAM HELD ON DAY 3
     Route: 048
  6. TACROLIMUS [Suspect]
     Dosage: 5 MG, QPM
     Route: 048
  7. CEFTRIAXONE SODIUM [Suspect]
     Dosage: 2 G, DAILY
     Route: 048
  8. TACROLIMUS [Suspect]
     Dosage: 1 MG, DAILY UPON DISCHARGE
     Route: 048

REACTIONS (2)
  - DRUG INTERACTION [None]
  - DRUG LEVEL INCREASED [None]
